FAERS Safety Report 7285267-7 (Version None)
Quarter: 2011Q1

REPORT INFORMATION
  Report Type: 
  Country: None (occurrence: None)
  Receive Date: 20110204
  Receipt Date: 20110204
  Transmission Date: 20110831
  Serious: Yes (Hospitalization)
  Sender: FDA-Public Use
  Company Number: None

PATIENT
  Age: 63 Year
  Sex: Male

DRUGS (4)
  1. METFORMIN HCL [Suspect]
     Indication: DIABETES MELLITUS
     Dosage: 850 MG BID PO
     Route: 048
     Dates: start: 20100205, end: 20110103
  2. BACTRIM [Suspect]
     Indication: PERITONEAL DISORDER
     Dosage: 800/A60 MG EVERY DAY PO
     Route: 048
     Dates: start: 20101222, end: 20101227
  3. BACTRIM [Suspect]
     Indication: ABDOMINAL DISCOMFORT
     Dosage: 800/A60 MG EVERY DAY PO
     Route: 048
     Dates: start: 20101222, end: 20101227
  4. BACTRIM [Suspect]
     Indication: PYREXIA
     Dosage: 800/A60 MG EVERY DAY PO
     Route: 048
     Dates: start: 20101222, end: 20101227

REACTIONS (7)
  - PYREXIA [None]
  - ABDOMINAL DISCOMFORT [None]
  - BLOOD CREATININE INCREASED [None]
  - DYSPNOEA [None]
  - BLOOD UREA INCREASED [None]
  - HYPOGLYCAEMIA [None]
  - NAUSEA [None]
